FAERS Safety Report 9925223 (Version 2)
Quarter: 2014Q2

REPORT INFORMATION
  Report Type: Spontaneous
  Country: DE (occurrence: DE)
  Receive Date: 20140226
  Receipt Date: 20140522
  Transmission Date: 20141212
  Serious: Yes (Other)
  Sender: FDA-Public Use
  Company Number: DE-PFIZER INC-2014051806

PATIENT
  Age: 65 Year
  Sex: Female
  Weight: 46 kg

DRUGS (4)
  1. REVATIO [Suspect]
     Dosage: 60 MG, DAILY
  2. IBUPROFEN [Concomitant]
     Indication: POLYARTHRITIS
     Dosage: UNK
  3. RESOCHIN [Concomitant]
     Indication: POLYARTHRITIS
     Dosage: UNK
  4. PREDNISOLON [Concomitant]
     Indication: POLYARTHRITIS
     Dosage: 2.5 TO 5 MG, DAILY

REACTIONS (3)
  - Iridocyclitis [Recovered/Resolved]
  - Hypopyon [Recovered/Resolved]
  - Iris adhesions [Recovered/Resolved]
